FAERS Safety Report 8917051 (Version 1)
Quarter: 2012Q4

REPORT INFORMATION
  Report Type: 
  Country: US (occurrence: US)
  Receive Date: 20121120
  Receipt Date: 20121120
  Transmission Date: 20130627
  Serious: Yes (Death, Other)
  Sender: FDA-Public Use
  Company Number: US-AMGEN-USASP2012073639

PATIENT
  Age: 79 Year
  Sex: Female

DRUGS (1)
  1. PROCRIT [Suspect]
     Indication: NEOPLASM MALIGNANT
     Dosage: UNK
     Route: 058

REACTIONS (3)
  - Death [Fatal]
  - Renal failure [Unknown]
  - Renal injury [Unknown]
